FAERS Safety Report 4337193-0 (Version None)
Quarter: 2004Q2

REPORT INFORMATION
  Report Type: 
  Country: None (occurrence: None)
  Receive Date: 20040408
  Receipt Date: 20040405
  Transmission Date: 20050107
  Serious: Yes (Other)
  Sender: FDA-Public Use
  Company Number: 805#1#2004-00005

PATIENT
  Age: 80 Year
  Sex: Male

DRUGS (2)
  1. PROSTANDIN-I.V. (ALPROSTADIL (PAOD)) [Suspect]
     Indication: ATHEROSCLEROSIS OBLITERANS
     Dosage: 1.120 MCG INTRAVENOUS DRIP
     Route: 041
     Dates: start: 20040318, end: 20040320
  2. SUCRALFATE [Concomitant]

REACTIONS (4)
  - ALANINE AMINOTRANSFERASE INCREASED [None]
  - ASPARTATE AMINOTRANSFERASE INCREASED [None]
  - GAMMA-GLUTAMYLTRANSFERASE INCREASED [None]
  - HEPATIC FUNCTION ABNORMAL [None]
